FAERS Safety Report 5329851-6 (Version None)
Quarter: 2007Q2

REPORT INFORMATION
  Report Type: 
  Country: None (occurrence: None)
  Receive Date: 20070517
  Receipt Date: 20070517
  Transmission Date: 20071010
  Serious: No
  Sender: FDA-Public Use
  Company Number: None

PATIENT
  Age: 22 Year
  Sex: Female
  Weight: 50.3493 kg

DRUGS (1)
  1. CLARAVIS [Suspect]
     Indication: ACNE
     Dosage: 1 PER DAY DAILY ORAL
     Route: 048
     Dates: start: 20060701, end: 20060901

REACTIONS (2)
  - DRUG INEFFECTIVE [None]
  - ECONOMIC PROBLEM [None]
